FAERS Safety Report 18118777 (Version 1)
Quarter: 2020Q3

REPORT INFORMATION
  Report Type: Spontaneous
  Country: CA (occurrence: CA)
  Receive Date: 20200806
  Receipt Date: 20200806
  Transmission Date: 20201103
  Serious: Yes (Death)
  Sender: FDA-Public Use
  Company Number: CA-ACCORD-193871

PATIENT
  Age: 48 Year
  Sex: Female

DRUGS (2)
  1. PREDNISONE. [Suspect]
     Active Substance: PREDNISONE
     Indication: IMMUNOSUPPRESSANT DRUG THERAPY
     Dosage: NOT SPECIFIED
     Route: 065
  2. MYCOPHENOLIC ACID. [Suspect]
     Active Substance: MYCOPHENOLIC ACID
     Indication: IMMUNOSUPPRESSANT DRUG THERAPY
     Dosage: NOT SPECIFIED
     Route: 065

REACTIONS (6)
  - Graft versus host disease in liver [Fatal]
  - Respiratory failure [Fatal]
  - Bronchiectasis [Fatal]
  - Mycobacterium fortuitum infection [Fatal]
  - Graft versus host disease in lung [Fatal]
  - Graft versus host disease in skin [Fatal]
